FAERS Safety Report 9575481 (Version 1)
Quarter: 2013Q4

REPORT INFORMATION
  Report Type: Spontaneous
  Country: US (occurrence: US)
  Receive Date: 20131001
  Receipt Date: 20131001
  Transmission Date: 20140711
  Serious: No
  Sender: FDA-Public Use
  Company Number: US-AMGEN-USASP2012083488

PATIENT
  Sex: Female
  Weight: 50.79 kg

DRUGS (2)
  1. ENBREL [Suspect]
     Indication: PRODUCT USED FOR UNKNOWN INDICATION
     Dosage: 50 MG, 2 TIMES/WK
     Route: 058
  2. VENLAFAXINE [Concomitant]
     Dosage: 25 MG, UNK

REACTIONS (2)
  - Injection site induration [Recovered/Resolved]
  - Injection site erythema [Recovered/Resolved]
